FAERS Safety Report 8927282 (Version 3)
Quarter: 2012Q4

REPORT INFORMATION
  Report Type: 
  Country: JP (occurrence: JP)
  Receive Date: 20121127
  Receipt Date: 20121217
  Transmission Date: 20130627
  Serious: Yes (Hospitalization)
  Sender: FDA-Public Use
  Company Number: JP-JNJFOC-20121111199

PATIENT
  Age: 83 Year
  Sex: Male

DRUGS (1)
  1. TRAMCET [Suspect]
     Indication: PRODUCT USED FOR UNKNOWN INDICATION
     Dosage: 1 per 1 day
     Route: 048
     Dates: end: 20121116

REACTIONS (1)
  - Duodenal ulcer [Recovered/Resolved]
